FAERS Safety Report 6086810-6 (Version None)
Quarter: 2009Q1

REPORT INFORMATION
  Report Type: 
  Country: None (occurrence: None)
  Receive Date: 20090223
  Receipt Date: 20090211
  Transmission Date: 20090719
  Serious: Yes (Hospitalization, Other)
  Sender: FDA-Public Use
  Company Number: US-ROCHE-552219

PATIENT
  Sex: Male
  Weight: 56.7 kg

DRUGS (3)
  1. ACCUTANE [Suspect]
     Indication: ACNE
     Dosage: PATIENT TOOK ACCUATNE FOR A FEW MONTHS IN 1997.
     Route: 065
     Dates: start: 19970101, end: 19970101
  2. ACCUTANE [Suspect]
     Route: 065
     Dates: start: 19980106, end: 19980323
  3. ACCUTANE [Suspect]
     Route: 065
     Dates: start: 19980416

REACTIONS (25)
  - ABDOMINAL SEPSIS [None]
  - ACUTE RESPIRATORY FAILURE [None]
  - ANAEMIA [None]
  - ANXIETY [None]
  - APPENDICECTOMY [None]
  - BLOOD URINE PRESENT [None]
  - CHRONIC SINUSITIS [None]
  - COLITIS [None]
  - COLITIS ULCERATIVE [None]
  - DEPRESSION [None]
  - EPIDIDYMITIS [None]
  - GASTRITIS [None]
  - HEADACHE [None]
  - ILEUS [None]
  - INFLAMMATORY BOWEL DISEASE [None]
  - INSOMNIA [None]
  - INTESTINAL ISCHAEMIA [None]
  - INTESTINAL OBSTRUCTION [None]
  - LARGE INTESTINE PERFORATION [None]
  - LOWER GASTROINTESTINAL HAEMORRHAGE [None]
  - MEGACOLON [None]
  - PELVIC ABSCESS [None]
  - PNEUMOTHORAX [None]
  - PROSTATITIS [None]
  - PSEUDOMEMBRANOUS COLITIS [None]
